FAERS Safety Report 5124940-3 (Version None)
Quarter: 2006Q4

REPORT INFORMATION
  Report Type: 
  Country: None (occurrence: None)
  Receive Date: 20061011
  Receipt Date: 20060616
  Transmission Date: 20070319
  Serious: Yes (Life-Threatening, Hospitalization)
  Sender: FDA-Public Use
  Company Number: US-BAYER-200614253BWH

PATIENT
  Age: 70 Year
  Sex: Female
  Weight: 69 kg

DRUGS (9)
  1. SORAFENIB [Suspect]
     Indication: RENAL CANCER METASTATIC
     Dosage: TOTAL DAILY DOSE: 800 MG  UNIT DOSE: 200 MG
     Route: 048
     Dates: start: 20051208, end: 20060524
  2. SORAFENIB [Suspect]
     Dosage: TOTAL DAILY DOSE: 400 MG  UNIT DOSE: 200 MG
     Route: 048
     Dates: start: 20060602, end: 20060615
  3. PLENDIL [Concomitant]
     Route: 048
     Dates: end: 20060615
  4. PEPCID [Concomitant]
     Dosage: TOTAL DAILY DOSE: 20 MG
     Route: 048
  5. MYLANTA GEL TAB [Concomitant]
  6. PRAVASTATIN [Concomitant]
     Route: 048
     Dates: end: 20060615
  7. TYLENOL [Concomitant]
     Dosage: UNIT DOSE: 500 MG
     Route: 048
  8. ADVIL [Concomitant]
     Dosage: UNIT DOSE: 200 MG
     Route: 048
  9. LOMOTIL [Concomitant]
     Route: 048
     Dates: end: 20060614

REACTIONS (6)
  - AORTIC VALVE INCOMPETENCE [None]
  - ATRIOVENTRICULAR BLOCK THIRD DEGREE [None]
  - CARDIOMEGALY [None]
  - DIARRHOEA [None]
  - NODAL ARRHYTHMIA [None]
  - VENTRICULAR HYPERTROPHY [None]
